FAERS Safety Report 24867599 (Version 3)
Quarter: 2025Q3

REPORT INFORMATION
  Report Type: Spontaneous
  Country: US (occurrence: US)
  Receive Date: 20250121
  Receipt Date: 20250704
  Transmission Date: 20251021
  Serious: No
  Sender: LEO PHARM
  Company Number: US-LEO Pharma-376973

PATIENT
  Age: 23 Year
  Sex: Male

DRUGS (2)
  1. ADBRY [Suspect]
     Active Substance: TRALOKINUMAB-LDRM
     Indication: Dermatitis atopic
     Dosage: TREATMENT IS ONGOING
     Dates: start: 202408
  2. ADBRY [Suspect]
     Active Substance: TRALOKINUMAB-LDRM
     Indication: Dermatitis
     Dosage: TREATMENT IS ONGOING
     Dates: start: 202408

REACTIONS (3)
  - Erythema [Unknown]
  - Drug ineffective [Unknown]
  - Dermatitis atopic [Unknown]
